FAERS Safety Report 7419739-9 (Version None)
Quarter: 2011Q2

REPORT INFORMATION
  Report Type: 
  Country: None (occurrence: None)
  Receive Date: 20110413
  Receipt Date: 20110413
  Transmission Date: 20111010
  Serious: Yes (Other)
  Sender: FDA-Public Use
  Company Number: None

PATIENT
  Age: 7 Year
  Sex: Male
  Weight: 22.6799 kg

DRUGS (2)
  1. CHILDREN'S IBUPROFEN [Suspect]
     Indication: PAIN
     Dosage: 2 TSP 6-8 HRS BY MOUTH
     Route: 048
     Dates: start: 20110405
  2. CHILDREN'S IBUPROFEN [Suspect]
     Indication: PYREXIA
     Dosage: 2 TSP 6-8 HRS BY MOUTH
     Route: 048
     Dates: start: 20110405

REACTIONS (10)
  - PAIN [None]
  - INTENTIONAL SELF-INJURY [None]
  - VOMITING [None]
  - PRURITUS GENERALISED [None]
  - DIZZINESS [None]
  - LETHARGY [None]
  - PYREXIA [None]
  - ABNORMAL BEHAVIOUR [None]
  - CONFUSIONAL STATE [None]
  - HALLUCINATION, VISUAL [None]
